FAERS Safety Report 11243648 (Version 3)
Quarter: 2015Q3

REPORT INFORMATION
  Report Type: Spontaneous
  Country: BD (occurrence: BD)
  Receive Date: 20150707
  Receipt Date: 20150716
  Transmission Date: 20151125
  Serious: Yes (Death, Hospitalization)
  Sender: FDA-Public Use
  Company Number: BD-OTSUKA-2015_004968

PATIENT
  Age: 57 Year
  Sex: Male

DRUGS (2)
  1. DACOGEN [Suspect]
     Active Substance: DECITABINE
     Indication: ACUTE MYELOID LEUKAEMIA
     Dosage: UNK, IN 28 DAY
     Route: 042
     Dates: start: 201207
  2. DACOGEN [Suspect]
     Active Substance: DECITABINE
     Dosage: UNK
     Route: 042
     Dates: start: 201305

REACTIONS (8)
  - Asthenia [Unknown]
  - Dysgeusia [Unknown]
  - Drug ineffective [Unknown]
  - Pyrexia [Recovered/Resolved]
  - White blood cell count increased [Recovering/Resolving]
  - Death [Fatal]
  - Pain [Unknown]
  - Platelet count decreased [Unknown]

NARRATIVE: CASE EVENT DATE: 2013
